FAERS Safety Report 7305366-0 (Version None)
Quarter: 2011Q1

REPORT INFORMATION
  Report Type: 
  Country: None (occurrence: None)
  Receive Date: 20110222
  Receipt Date: 20110211
  Transmission Date: 20110831
  Serious: Yes (Hospitalization)
  Sender: FDA-Public Use
  Company Number: PHHO2011DE02890

PATIENT
  Age: 59 Year
  Sex: Male

DRUGS (2)
  1. SUNITINIB MALATE [Concomitant]
     Indication: RENAL CELL CARCINOMA
     Dosage: 50 MG, UNK
     Dates: start: 20060130
  2. ZOLEDRONATE [Suspect]
     Indication: RENAL CELL CARCINOMA
     Dosage: UNK
     Route: 042
     Dates: start: 20060213, end: 20061016

REACTIONS (2)
  - OSTEONECROSIS OF JAW [None]
  - SURGERY [None]
